FAERS Safety Report 13074692 (Version 1)
Quarter: 2016Q4

REPORT INFORMATION
  Report Type: Spontaneous
  Country: US (occurrence: US)
  Receive Date: 20161230
  Receipt Date: 20161230
  Transmission Date: 20170207
  Serious: No
  Sender: FDA-Public Use
  Company Number: US-TEVA-656712USA

PATIENT
  Sex: Female

DRUGS (3)
  1. METOPROLOL SUCCINATE. [Concomitant]
     Active Substance: METOPROLOL SUCCINATE
     Indication: CARDIAC MURMUR
  2. METOPROLOL SUCCINATE. [Concomitant]
     Active Substance: METOPROLOL SUCCINATE
     Indication: ATRIAL SEPTAL DEFECT
     Dates: start: 201602
  3. TRAZODONE [Suspect]
     Active Substance: TRAZODONE HYDROCHLORIDE
     Route: 065
     Dates: start: 20151222

REACTIONS (5)
  - Appetite disorder [Unknown]
  - Thirst [Unknown]
  - Cardiac murmur [Unknown]
  - Abnormal dreams [Unknown]
  - Irritability [Unknown]

NARRATIVE: CASE EVENT DATE: 201603
